FAERS Safety Report 8543618-7 (Version None)
Quarter: 2012Q3

REPORT INFORMATION
  Report Type: 
  Country: None (occurrence: None)
  Receive Date: 20120717
  Receipt Date: 20120709
  Transmission Date: 20120928
  Serious: Yes (Other)
  Sender: FDA-Public Use
  Company Number: 2010JP005012

PATIENT
  Age: 32 Year
  Sex: Female
  Weight: 42.5 kg

DRUGS (11)
  1. TACROLIMUS [Suspect]
     Indication: LUPUS NEPHRITIS
     Dosage: 3 MG, UNKNOWN/D, ORAL
     Route: 048
     Dates: start: 20090702, end: 20110601
  2. WARFARIN POTASSIUM (WARFARIN POTASSIUM) [Concomitant]
  3. LIPITOR [Concomitant]
  4. CALCIUM LACTATE (CALCIUM LACTATE) [Concomitant]
  5. ACTONEL [Concomitant]
  6. PREDNISOLONE (REDNISOLONE) [Concomitant]
  7. SELBEX (TEPRENONE) [Concomitant]
  8. ALFAROL (ALFACALCIDOL) [Concomitant]
  9. FAMOTIDINE [Concomitant]
  10. SULFAMETHOXAZOLE AND TRIMETHOPRIM [Concomitant]
  11. VALTREX [Concomitant]

REACTIONS (4)
  - BRONCHITIS [None]
  - MATERNAL EXPOSURE DURING PREGNANCY [None]
  - LIVER DISORDER [None]
  - HERPES ZOSTER [None]
